FAERS Safety Report 4546514-5 (Version None)
Quarter: 2005Q1

REPORT INFORMATION
  Report Type: 
  Country: None (occurrence: None)
  Receive Date: 20050106
  Receipt Date: 20050105
  Transmission Date: 20050727
  Serious: Yes (Hospitalization)
  Sender: FDA-Public Use
  Company Number: US-GLAXOSMITHKLINE-A0539481A

PATIENT
  Age: 48 Year
  Sex: Female

DRUGS (5)
  1. ADVAIR DISKUS 100/50 [Suspect]
     Indication: ASTHMA
     Route: 055
     Dates: start: 20010901, end: 20010901
  2. PREDNISONE [Suspect]
  3. ATIVAN [Concomitant]
  4. ADVIL [Concomitant]
  5. MAXAIR [Concomitant]

REACTIONS (11)
  - ASTHENIA [None]
  - ASTHMA [None]
  - BRONCHOSPASM [None]
  - CHEST DISCOMFORT [None]
  - CHEST PAIN [None]
  - DRUG INEFFECTIVE [None]
  - DYSPNOEA [None]
  - ILL-DEFINED DISORDER [None]
  - INFLAMMATION [None]
  - MENTAL IMPAIRMENT [None]
  - THINKING ABNORMAL [None]
